FAERS Safety Report 8912966 (Version 1)
Quarter: 2012Q4

REPORT INFORMATION
  Report Type: 
  Country: IT (occurrence: IT)
  Receive Date: 20121116
  Receipt Date: 20121116
  Transmission Date: 20130627
  Serious: Yes (Death)
  Sender: FDA-Public Use
  Company Number: IT-ASTRAZENECA-2012SE85896

PATIENT
  Age: 10957 Day
  Sex: Male

DRUGS (2)
  1. PROPOFOL [Suspect]
     Indication: DENTAL OPERATION
     Route: 040
  2. MIDAZOLAM [Concomitant]

REACTIONS (1)
  - Cardiac arrest [Fatal]
